FAERS Safety Report 5788566-0 (Version None)
Quarter: 2008Q2

REPORT INFORMATION
  Report Type: 
  Country: None (occurrence: None)
  Receive Date: 20080618
  Receipt Date: 20080128
  Transmission Date: 20081010
  Serious: Yes (Other)
  Sender: FDA-Public Use
  Company Number: 200810185US

PATIENT
  Age: 52 Year
  Sex: Male
  Weight: 127.46 kg

DRUGS (7)
  1. LANTUS [Suspect]
     Indication: TYPE 2 DIABETES MELLITUS
     Dosage: 10 U QD INJ
     Dates: start: 20080105, end: 20080106
  2. METFORMIN, GLIBENCLAMIDE (GLUCOVANCE /01503701/) [Concomitant]
  3. LISINOPRIL [Concomitant]
  4. OXYCODONE HYDROCHLORIDE (ROXICODONE) [Concomitant]
  5. FENTANYL (DURAGESIC /00174601/) [Concomitant]
  6. NEURONTIN [Concomitant]
  7. LIPITOR [Concomitant]

REACTIONS (10)
  - ANAPHYLACTOID REACTION [None]
  - ANGIOEDEMA [None]
  - BURNING SENSATION [None]
  - DYSPNOEA [None]
  - HEADACHE [None]
  - NAUSEA [None]
  - PHARYNGEAL OEDEMA [None]
  - PYREXIA [None]
  - URTICARIA [None]
  - URTICARIA PHYSICAL [None]
